FAERS Safety Report 6626279-3 (Version None)
Quarter: 2010Q1

REPORT INFORMATION
  Report Type: 
  Country: None (occurrence: None)
  Receive Date: 20100310
  Receipt Date: 20090522
  Transmission Date: 20100710
  Serious: No
  Sender: FDA-Public Use
  Company Number: US-ABBOTT-09P-163-0575613-00

PATIENT
  Sex: Male

DRUGS (4)
  1. LUPRON DEPOT [Suspect]
     Indication: PROSTATE CANCER
     Dosage: UNSURE OF ACTUAL DOSE
     Dates: start: 20071001
  2. COUMADIN [Concomitant]
     Indication: HEART VALVE REPLACEMENT
     Dates: start: 19970101
  3. LISINOPRIL [Concomitant]
     Indication: HYPERTENSION
  4. ACIPHEX [Concomitant]
     Indication: GASTROOESOPHAGEAL REFLUX DISEASE

REACTIONS (6)
  - ARTHRALGIA [None]
  - ARTHRITIS INFECTIVE [None]
  - INJECTION SITE INDURATION [None]
  - JOINT LOCK [None]
  - MUSCLE RUPTURE [None]
  - PROSTATIC SPECIFIC ANTIGEN INCREASED [None]
